FAERS Safety Report 13246512 (Version 1)
Quarter: 2017Q1

REPORT INFORMATION
  Report Type: Report from Study
  Country: None (occurrence: US)
  Receive Date: 20170217
  Receipt Date: 20170217
  Transmission Date: 20170428
  Serious: Yes (Hospitalization)
  Sender: FDA-Public Use
  Company Number: US-ABBVIE-17K-163-1872218-00

PATIENT
  Sex: Female

DRUGS (1)
  1. HUMIRA [Suspect]
     Active Substance: ADALIMUMAB
     Indication: CROHN^S DISEASE
     Route: 058
     Dates: start: 20161229

REACTIONS (14)
  - Mental disorder [Unknown]
  - Abdominal pain [Unknown]
  - Headache [Unknown]
  - Rectal haemorrhage [Unknown]
  - Weight decreased [Unknown]
  - Nasal congestion [Unknown]
  - Insomnia [Unknown]
  - Nausea [Unknown]
  - Decreased appetite [Unknown]
  - Major depression [Unknown]
  - Constipation [Unknown]
  - Activities of daily living impaired [Unknown]
  - Asthenopia [Unknown]
  - Anxiety [Unknown]
